FAERS Safety Report 20407850 (Version 2)
Quarter: 2022Q1

REPORT INFORMATION
  Report Type: Spontaneous
  Country: US (occurrence: US)
  Receive Date: 20220201
  Receipt Date: 20220211
  Transmission Date: 20220423
  Serious: No
  Sender: FDA-Public Use
  Company Number: US-APOTEX-2022AP001942

PATIENT
  Sex: Female

DRUGS (3)
  1. BUPRENORPHINE TRANSDERMAL SYSTEM [Suspect]
     Active Substance: BUPRENORPHINE
     Indication: Fracture pain
     Dosage: 1 DOSAGE FORM, Q.WK. (EVERY 7 DAYS)
     Route: 065
  2. VERZENIO [Suspect]
     Active Substance: ABEMACICLIB
     Indication: Chemotherapy
     Dosage: 100 MILLIGRAM, BID
     Route: 065
  3. ANASTROZOLE [Suspect]
     Active Substance: ANASTROZOLE
     Indication: Antioestrogen therapy
     Dosage: 1 MILLIGRAM, QD
     Route: 065

REACTIONS (2)
  - Rash pruritic [Unknown]
  - Product adhesion issue [Unknown]
